FAERS Safety Report 10555684 (Version 3)
Quarter: 2015Q3

REPORT INFORMATION
  Report Type: Report from Study
  Country: US (occurrence: US)
  Receive Date: 20141030
  Receipt Date: 20150820
  Transmission Date: 20151125
  Serious: Yes (Hospitalization, Other)
  Sender: FDA-Public Use
  Company Number: US-SA-2014SA146200

PATIENT
  Age: 73 Year
  Sex: Female

DRUGS (2)
  1. LANTUS SOLOSTAR [Suspect]
     Active Substance: INSULIN GLARGINE
     Indication: DIABETES MELLITUS
     Dosage: FREQ: EVERY NIGHT
     Route: 058
     Dates: start: 20120301, end: 20150813
  2. SOLOSTAR [Concomitant]
     Active Substance: DEVICE
     Indication: DIABETES MELLITUS
     Dates: start: 20120301, end: 20150813

REACTIONS (12)
  - Renal impairment [Not Recovered/Not Resolved]
  - Head injury [Unknown]
  - Blood glucose abnormal [Unknown]
  - Hospitalisation [Unknown]
  - Blood pressure abnormal [Unknown]
  - Fall [Unknown]
  - Eye haemorrhage [Unknown]
  - Reading disorder [Unknown]
  - Renal failure [Unknown]
  - Ocular discomfort [Not Recovered/Not Resolved]
  - Blindness unilateral [Recovering/Resolving]
  - Loss of consciousness [Unknown]

NARRATIVE: CASE EVENT DATE: 20121220
